FAERS Safety Report 23512004 (Version 3)
Quarter: 2024Q1

REPORT INFORMATION
  Report Type: Report from Study
  Country: CA (occurrence: CA)
  Receive Date: 20240212
  Receipt Date: 20240319
  Transmission Date: 20240409
  Serious: Yes (Hospitalization, Other)
  Sender: FDA-Public Use
  Company Number: CA-JNJFOC-20231169052

PATIENT
  Age: 41 Year
  Sex: Female

DRUGS (10)
  1. REMICADE [Suspect]
     Active Substance: INFLIXIMAB
     Indication: Psoriatic arthropathy
     Route: 041
     Dates: start: 20080609
  2. REMICADE [Suspect]
     Active Substance: INFLIXIMAB
     Dosage: 23D106, EXPIRY DATE:JUN-2026; 23D147, EXPIRY DATE: AUG-2026, 01-AUG-2026
     Route: 041
  3. ELAVIL [Concomitant]
     Active Substance: AMITRIPTYLINE HYDROCHLORIDE
  4. PANTOPRAZOLE SODIUM [Concomitant]
     Active Substance: PANTOPRAZOLE SODIUM
  5. CORTEF [Concomitant]
     Active Substance: HYDROCORTISONE
  6. SYNTHROID [Concomitant]
     Active Substance: LEVOTHYROXINE SODIUM
  7. CETIRIZINE HYDROCHLORIDE [Concomitant]
     Active Substance: CETIRIZINE HYDROCHLORIDE
  8. CETIRIZINE [Concomitant]
     Active Substance: CETIRIZINE HYDROCHLORIDE
  9. AMITRIPTYLINE [Concomitant]
     Active Substance: AMITRIPTYLINE
  10. ACETAMINOPHEN [Concomitant]
     Active Substance: ACETAMINOPHEN

REACTIONS (13)
  - Chest pain [Recovered/Resolved]
  - Uterine operation [Unknown]
  - Injection site bruising [Recovering/Resolving]
  - Injection site discomfort [Recovering/Resolving]
  - Diarrhoea [Not Recovered/Not Resolved]
  - Myalgia [Not Recovered/Not Resolved]
  - Arthralgia [Not Recovered/Not Resolved]
  - Hypersensitivity [Unknown]
  - Influenza [Not Recovered/Not Resolved]
  - Infusion related reaction [Recovered/Resolved]
  - Migraine [Unknown]
  - Streptococcal infection [Unknown]
  - Acanthosis nigricans [Not Recovered/Not Resolved]

NARRATIVE: CASE EVENT DATE: 20240305
